FAERS Safety Report 7044138-1 (Version None)
Quarter: 2010Q4

REPORT INFORMATION
  Report Type: 
  Country: None (occurrence: None)
  Receive Date: 20101013
  Receipt Date: 20101004
  Transmission Date: 20110411
  Serious: Yes (Death, Hospitalization, Other)
  Sender: FDA-Public Use
  Company Number: US-PFIZER INC-2009172766

PATIENT
  Sex: Male

DRUGS (1)
  1. LYRICA [Suspect]
     Indication: NEUROPATHY PERIPHERAL
     Dosage: UNK

REACTIONS (9)
  - ASTHMA [None]
  - BLOOD POTASSIUM INCREASED [None]
  - CONVULSION [None]
  - DEAFNESS UNILATERAL [None]
  - METABOLIC DISORDER [None]
  - MYOCARDIAL INFARCTION [None]
  - RENAL CANCER [None]
  - RESPIRATORY ARREST [None]
  - RESPIRATORY DISTRESS [None]
